FAERS Safety Report 7712474-9 (Version None)
Quarter: 2011Q3

REPORT INFORMATION
  Report Type: 
  Country: None (occurrence: None)
  Receive Date: 20110826
  Receipt Date: 20110826
  Transmission Date: 20111222
  Serious: Yes (Hospitalization)
  Sender: FDA-Public Use
  Company Number: None

PATIENT
  Age: 33 Year
  Sex: Female
  Weight: 86.182 kg

DRUGS (2)
  1. ADIPEX-P [Concomitant]
  2. PHENTERMINE [Suspect]
     Indication: WEIGHT CONTROL
     Dosage: ONE TABLET
     Route: 048
     Dates: start: 20081001, end: 20110801

REACTIONS (3)
  - WITHDRAWAL SYNDROME [None]
  - DEPRESSION [None]
  - CONDITION AGGRAVATED [None]
